FAERS Safety Report 19163879 (Version 1)
Quarter: 2021Q2

REPORT INFORMATION
  Report Type: Spontaneous
  Country: AU (occurrence: AU)
  Receive Date: 20210421
  Receipt Date: 20210421
  Transmission Date: 20210717
  Serious: Yes (Hospitalization)
  Sender: FDA-Public Use
  Company Number: AU-CIPLA LTD.-2021AU02817

PATIENT

DRUGS (11)
  1. PANADEINE FORTE [Suspect]
     Active Substance: ACETAMINOPHEN\CODEINE PHOSPHATE
     Dosage: UNK (10 X PANADIENE FORTE)
     Route: 065
     Dates: start: 201108
  2. METHOTREXATE. [Suspect]
     Active Substance: METHOTREXATE
     Indication: PSORIASIS
     Dosage: 10 MG WEEKLY
     Route: 065
     Dates: start: 201605
  3. EUCALYPTUS OIL [Suspect]
     Active Substance: EUCALYPTUS OIL
     Dosage: 100 ML
     Route: 065
     Dates: start: 201108
  4. PARACETAMOL [Suspect]
     Active Substance: ACETAMINOPHEN
     Dosage: 15 X 500MG
     Route: 065
     Dates: start: 201307
  5. PARACETAMOL [Suspect]
     Active Substance: ACETAMINOPHEN
     Dosage: 30 X 500 MG
     Route: 065
     Dates: start: 201512
  6. SEROQUEL [Suspect]
     Active Substance: QUETIAPINE FUMARATE
     Dosage: 2 X 100MG
     Route: 065
     Dates: start: 201512
  7. NAPROXEN. [Suspect]
     Active Substance: NAPROXEN
     Indication: PAIN
     Dosage: 750 MG 2?3X WEEK
     Route: 065
     Dates: start: 2016
  8. PARACETAMOL [Suspect]
     Active Substance: ACETAMINOPHEN
     Dosage: 24 X 500MG
     Route: 065
     Dates: start: 201108
  9. PARACETAMOL [Suspect]
     Active Substance: ACETAMINOPHEN
     Dosage: 18 X 500MG
     Route: 065
     Dates: start: 201109
  10. MELATONIN [Suspect]
     Active Substance: MELATONIN
     Dosage: 2 X 2MG
     Route: 065
     Dates: start: 201512
  11. VOLTAREN [DICLOFENAC] [Suspect]
     Active Substance: DICLOFENAC SODIUM
     Dosage: UNK (4 X DICLOFENAC)
     Route: 065
     Dates: start: 201108

REACTIONS (7)
  - Overdose [Unknown]
  - Drug intolerance [Unknown]
  - Drug ineffective [Unknown]
  - Liver function test abnormal [Unknown]
  - Nausea [Unknown]
  - Headache [Unknown]
  - Therapeutic product effect incomplete [Unknown]

NARRATIVE: CASE EVENT DATE: 201108
